FAERS Safety Report 20849076 (Version 1)
Quarter: 2022Q2

REPORT INFORMATION
  Report Type: Spontaneous
  Country: FR (occurrence: FR)
  Receive Date: 20220519
  Receipt Date: 20220519
  Transmission Date: 20220720
  Serious: Yes (Other)
  Sender: FDA-Public Use
  Company Number: None

PATIENT
  Age: 64 Year
  Sex: Male

DRUGS (1)
  1. BISOPROLOL [Suspect]
     Active Substance: BISOPROLOL
     Indication: Product used for unknown indication
     Dosage: UNK
     Route: 065

REACTIONS (3)
  - Atrial fibrillation [Recovering/Resolving]
  - Cardiac flutter [Recovering/Resolving]
  - Ventricular extrasystoles [Recovering/Resolving]

NARRATIVE: CASE EVENT DATE: 20211101
